FAERS Safety Report 6475593-3 (Version None)
Quarter: 2009Q4

REPORT INFORMATION
  Report Type: 
  Country: None (occurrence: None)
  Receive Date: 20091204
  Receipt Date: 20091201
  Transmission Date: 20100525
  Serious: Yes (Hospitalization)
  Sender: FDA-Public Use
  Company Number: CA-MERCK-0912CAN00004

PATIENT
  Age: 76 Year
  Sex: Male
  Weight: 77 kg

DRUGS (6)
  1. COZAAR [Suspect]
     Indication: ESSENTIAL HYPERTENSION
     Route: 048
     Dates: start: 20090224
  2. ASAPHEN [Suspect]
     Indication: PROPHYLAXIS
     Route: 065
     Dates: start: 20040224, end: 20091201
  3. TENORMIN [Concomitant]
     Indication: HYPERTENSION
     Route: 065
     Dates: start: 20050101
  4. LIPITOR [Concomitant]
     Indication: HYPERLIPIDAEMIA
     Route: 065
     Dates: start: 20050101
  5. NPH INSULIN [Concomitant]
     Indication: DIABETES MELLITUS
     Route: 065
     Dates: start: 20040518
  6. INSULIN [Concomitant]
     Indication: DIABETES MELLITUS
     Route: 065
     Dates: start: 20040518

REACTIONS (1)
  - OESOPHAGITIS [None]
